FAERS Safety Report 22959419 (Version 2)
Quarter: 2024Q1

REPORT INFORMATION
  Report Type: Report from Study
  Country: GB (occurrence: GB)
  Receive Date: 20230920
  Receipt Date: 20240107
  Transmission Date: 20240409
  Serious: Yes (Other)
  Sender: FDA-Public Use
  Company Number: GB-ABBVIE-5383607

PATIENT
  Age: 73 Year

DRUGS (2)
  1. VENETOCLAX [Suspect]
     Active Substance: VENETOCLAX
     Indication: Plasma cell myeloma recurrent
     Route: 048
     Dates: start: 2023, end: 2023
  2. VENETOCLAX [Suspect]
     Active Substance: VENETOCLAX
     Indication: Plasma cell myeloma recurrent
     Route: 048
     Dates: start: 2023, end: 20231012

REACTIONS (3)
  - Plasma cell myeloma [Unknown]
  - Monoclonal immunoglobulin increased [Unknown]
  - Off label use [Unknown]

NARRATIVE: CASE EVENT DATE: 20230101
